FAERS Safety Report 13637538 (Version 1)
Quarter: 2017Q2

REPORT INFORMATION
  Report Type: Spontaneous
  Country: None (occurrence: US)
  Receive Date: 20170608
  Receipt Date: 20170608
  Transmission Date: 20170830
  Serious: Yes (Other)
  Sender: FDA-Public Use
  Company Number: None

PATIENT
  Age: 84 Year
  Sex: Female

DRUGS (1)
  1. FORTEO [Suspect]
     Active Substance: TERIPARATIDE
     Indication: OSTEOPOROSIS
     Route: 058
     Dates: start: 20170518, end: 20170519

REACTIONS (4)
  - Paraesthesia [None]
  - Hypertension [None]
  - Injection site pruritus [None]
  - Hypersensitivity [None]

NARRATIVE: CASE EVENT DATE: 20170519
